FAERS Safety Report 19144729 (Version 1)
Quarter: 2021Q2

REPORT INFORMATION
  Report Type: Spontaneous
  Country: US (occurrence: US)
  Receive Date: 20210415
  Receipt Date: 20210415
  Transmission Date: 20210717
  Serious: No
  Sender: FDA-Public Use
  Company Number: None

PATIENT
  Sex: Female

DRUGS (16)
  1. SPIRONO/HCTZ [Concomitant]
  2. VENLAXINE [Concomitant]
  3. PAXIL [Concomitant]
     Active Substance: PAROXETINE HYDROCHLORIDE
  4. PRAVASTATIN. [Concomitant]
     Active Substance: PRAVASTATIN
  5. PAROXETINE. [Concomitant]
     Active Substance: PAROXETINE
  6. CEFDINR [Concomitant]
  7. PROMETHAZINE [Concomitant]
     Active Substance: PROMETHAZINE HYDROCHLORIDE
  8. LOSTARAN POT [Concomitant]
  9. ENOXAPARIN [Suspect]
     Active Substance: ENOXAPARIN
     Indication: CUTANEOUS LUPUS ERYTHEMATOSUS
     Route: 058
     Dates: start: 20150814
  10. ZITHROMAX [Concomitant]
     Active Substance: AZITHROMYCIN DIHYDRATE
  11. CELLCEPT [Concomitant]
     Active Substance: MYCOPHENOLATE MOFETIL\MYCOPHENOLATE MOFETIL HYDROCHLORIDE
  12. AMLODIPINE [Concomitant]
     Active Substance: AMLODIPINE BESYLATE
  13. PREDNISONE. [Concomitant]
     Active Substance: PREDNISONE
  14. ALDACTAZIDE [Concomitant]
     Active Substance: HYDROCHLOROTHIAZIDE\SPIRONOLACTONE
  15. ZANTAC [Concomitant]
     Active Substance: RANITIDINE HYDROCHLORIDE
  16. METOPROLOL TARTRATE. [Concomitant]
     Active Substance: METOPROLOL TARTRATE

REACTIONS (3)
  - Dialysis [None]
  - Renal disorder [None]
  - Therapy interrupted [None]
